FAERS Safety Report 9913899 (Version 4)
Quarter: 2014Q2

REPORT INFORMATION
  Report Type: Spontaneous
  Country: US (occurrence: None)
  Receive Date: 20140218
  Receipt Date: 20140618
  Transmission Date: 20141212
  Serious: Yes (Hospitalization)
  Sender: FDA-Public Use
  Company Number: KAD201402-000132

PATIENT
  Age: 68 Year
  Sex: Male
  Weight: 165.2 kg

DRUGS (32)
  1. RIBAVIRIN [Suspect]
     Route: 048
     Dates: start: 20131211, end: 20140206
  2. SOFOSBUVIR / LEDIPASVIR [Suspect]
     Dosage: 1 DOSE EA, ORAL
     Route: 048
     Dates: start: 20140113, end: 20140114
  3. XANAX (ALPRAZOLAM) [Concomitant]
  4. MORPHINE SULPHATE(MORPHINE SULPHATE) [Concomitant]
  5. DILAUDID(HYDROMORPHONE HYDROCHLORIDE) [Concomitant]
  6. PROTONIX(PANTOPRAZOLE SODIUM) [Concomitant]
  7. ASPIRIN(ACETYLE SALICYLIC ACID) [Concomitant]
  8. HUMALOG(INSULIN LISPRO) [Concomitant]
  9. ZOFRAN(ONDANSETRON HYDROCHLORIDE) [Concomitant]
  10. MAALOX PLUS (SIMETHICONE, ALUMINUM HYDROXIDE, MAGNESIUM HYDROXIDE) [Concomitant]
  11. TYLENOL(ACETAMINOPHEN) [Concomitant]
  12. TORADOL(KETOROLAC TROMETHAMINE) [Concomitant]
  13. PERCOCET(OXYCODONE ACETAMINOPHEN-5) [Concomitant]
  14. APRESOLINE(HYDRALAZINE HYDROCHLORIDE) [Concomitant]
  15. PORCINE(HEPARIN SODIUM) [Concomitant]
  16. FLOMAX(TAMSULOSIN HYDROCHLORIDE) [Concomitant]
  17. GLUCOPHAGE(METFORMIN HYDROCHLORIDE) [Concomitant]
  18. HYDROCHLORTHIAZIDE(HYDROCHLORTHIAZIDE) [Concomitant]
  19. PROSCAR(FINASTERIDE) [Concomitant]
  20. DIOVAN(VALSARTAN) [Concomitant]
  21. DITROPAN(OXYBUTYNIN CHLORIDE) [Concomitant]
  22. LEXISCAN(REGADENOSON) [Concomitant]
  23. VALSTARTAN (VALSTARTAN) [Concomitant]
  24. LOSARTAN POTASSIUM (LOSARTAN POTASSIUM) [Concomitant]
  25. ELECTROLYTE REPLACEMENT (ELECTROLYTE) [Concomitant]
  26. ALUM-MAG HYDROXIDE SIMETH (ALUM-MAG HYDROXIDE SIMETH) [Concomitant]
  27. HEPARIN (HEPARIN) [Concomitant]
  28. ALPRAZOLAM (ALPRAZOLAM) [Concomitant]
  29. PREDNISOLONE ACETATE (PREDNISOLONE ACETATE) [Concomitant]
  30. HYDROMORPHONE (HYDROMORPHONE) [Concomitant]
  31. GI COCKTAIL (GI COCKTAIL) [Concomitant]
  32. NITROQUICK (NITROGLYCERIN) [Concomitant]

REACTIONS (22)
  - Chest pain [None]
  - Chest discomfort [None]
  - Nausea [None]
  - Atrioventricular block first degree [None]
  - White blood cell count increased [None]
  - Haemoglobin decreased [None]
  - Mean cell volume increased [None]
  - Red cell distribution width increased [None]
  - Blood glucose increased [None]
  - Blood sodium decreased [None]
  - Blood urea increased [None]
  - Blood bilirubin increased [None]
  - Fibrin D dimer increased [None]
  - Low density lipoprotein increased [None]
  - Blood creatine phosphokinase decreased [None]
  - Red blood cell count decreased [None]
  - Haematocrit decreased [None]
  - Mean cell haemoglobin concentration decreased [None]
  - Impaired gastric emptying [None]
  - Gastrooesophageal reflux disease [None]
  - Gallbladder disorder [None]
  - Hiatus hernia [None]
